FAERS Safety Report 23101026 (Version 1)
Quarter: 2023Q4

REPORT INFORMATION
  Report Type: Spontaneous
  Country: US (occurrence: None)
  Receive Date: 20231021
  Receipt Date: 20231021
  Transmission Date: 20240110
  Serious: Yes (Hospitalization)
  Sender: FDA-Public Use
  Company Number: None

PATIENT
  Age: 41 Year
  Sex: Female
  Weight: 68.4 kg

DRUGS (1)
  1. SERTRALINE HYDROCHLORIDE [Suspect]
     Active Substance: SERTRALINE HYDROCHLORIDE
     Dates: start: 20221104, end: 20221121

REACTIONS (5)
  - Seizure [None]
  - Hypertension [None]
  - Nausea [None]
  - Therapy cessation [None]
  - Cerebral cyst [None]

NARRATIVE: CASE EVENT DATE: 20221121
